FAERS Safety Report 23628984 (Version 2)
Quarter: 2024Q2

REPORT INFORMATION
  Report Type: Report from Study
  Country: CA (occurrence: CA)
  Receive Date: 20240313
  Receipt Date: 20240412
  Transmission Date: 20240715
  Serious: Yes (Death)
  Sender: FDA-Public Use
  Company Number: CA-HLS-202400726

PATIENT
  Age: 56 Year
  Sex: Female

DRUGS (16)
  1. CLOZARIL [Suspect]
     Active Substance: CLOZAPINE
     Indication: Product used for unknown indication
     Dosage: 4 TABLETS ONCE A DAY AT BEDTIME (WITH 2 TABLETS OF 25 MG)TOTAL 50 MG
     Route: 048
  2. CLOZARIL [Suspect]
     Active Substance: CLOZAPINE
     Indication: Product used for unknown indication
     Dosage: 2 TABLETS ONCE A DAY AT BEDTIME (4 TABLETS OF 100 MG) TOTAL 450 MG
     Route: 048
     Dates: start: 20050913
  3. Riva citalopram [Concomitant]
     Indication: Product used for unknown indication
     Dosage: 1 TABLET /DAY
     Route: 065
  4. SYNTHROID [Concomitant]
     Active Substance: LEVOTHYROXINE SODIUM
     Indication: Product used for unknown indication
     Route: 065
  5. RIVA-QUETIAPINE [Concomitant]
     Indication: Product used for unknown indication
     Dosage: 1 TABLET /DAY
     Route: 065
  6. FOLIC ACID [Concomitant]
     Active Substance: FOLIC ACID
     Indication: Product used for unknown indication
     Dosage: 1 TABLET ONCE A DAY AM
     Route: 065
  7. FENOFIBRATE [Concomitant]
     Active Substance: FENOFIBRATE
     Indication: Product used for unknown indication
     Dosage: 1 TABLET ONCE DAY AT SUPPER
     Route: 065
  8. M-CAL [Concomitant]
     Indication: Osteoporosis
     Dosage: 1 TABLET ONCE A DAY AT MEALTIME (CALCIUM- OSTEOPOROSIS)
     Route: 065
  9. QUETIAPINE FUMARATE [Concomitant]
     Active Substance: QUETIAPINE FUMARATE
     Indication: Product used for unknown indication
     Dosage: 1 TABLET ONCE A DAY AT RISE REGULARLY
     Route: 065
  10. M-B12 [Concomitant]
     Indication: Vitamin supplementation
     Dosage: 1 TABLET ONCE A DAY AT BREAKFAST (VIT)
     Route: 065
  11. ATORVASTATIN CALCIUM [Concomitant]
     Active Substance: ATORVASTATIN CALCIUM
     Indication: Product used for unknown indication
     Dosage: 1 TABLET ONCE A DAY PM AT BEDTIME (CHOLESTEROL - TRIGLYCERIDES)
     Route: 065
  12. Teva Propanol [Concomitant]
     Indication: Product used for unknown indication
     Dosage: 1 TABLET ONCE A DAY AT AM, 2 TABLETS AT NOON 2 TABLETS AT SUPPER
     Route: 065
  13. ACETAMINOPHEN [Concomitant]
     Active Substance: ACETAMINOPHEN
     Indication: Pyrexia
     Dosage: 1 TABLET TWICE A DAY AS NEEDED FOR PAIN AND FEVER
     Route: 065
  14. ACETAMINOPHEN [Concomitant]
     Active Substance: ACETAMINOPHEN
     Indication: Pain
     Dosage: 1 TABLET TWICE A DAY AS NEEDED FOR PAIN AND FEVER
     Route: 065
  15. D-tab [Concomitant]
     Indication: Product used for unknown indication
     Dosage: 1 TABLET ONCE A WEEK- THURSDAY
     Route: 065
  16. ATIVAN [Concomitant]
     Active Substance: LORAZEPAM
     Indication: Product used for unknown indication
     Dosage: 1 TABLET ONCE A DAY
     Route: 065

REACTIONS (1)
  - Death [Fatal]

NARRATIVE: CASE EVENT DATE: 20231005
